FAERS Safety Report 10634907 (Version 2)
Quarter: 2015Q1

REPORT INFORMATION
  Report Type: Spontaneous
  Country: US (occurrence: US)
  Receive Date: 20141205
  Receipt Date: 20150116
  Transmission Date: 20150720
  Serious: No
  Sender: FDA-Public Use
  Company Number: US-PFIZER INC-2014331423

PATIENT
  Sex: Female

DRUGS (29)
  1. LITHIUM CARBONATE. [Suspect]
     Active Substance: LITHIUM CARBONATE
     Dosage: UNK
  2. DIFLUCAN [Suspect]
     Active Substance: FLUCONAZOLE
     Dosage: UNK
  3. LIDOCAINE HCL [Suspect]
     Active Substance: LIDOCAINE HYDROCHLORIDE
     Dosage: UNK
  4. PROPARACAINE [Suspect]
     Active Substance: PROPARACAINE
     Dosage: 0.5 %, UNK
  5. TROPICAMIDE. [Suspect]
     Active Substance: TROPICAMIDE
     Dosage: 1 %, UNK
  6. PROCAINE BENZYLPENICILLIN [Suspect]
     Active Substance: PENICILLIN G PROCAINE
     Dosage: UNK
  7. FLEXITOL ANTI FUNGAL [Suspect]
     Active Substance: UNDECYLENIC ACID
     Dosage: UNK
  8. DEMEROL [Suspect]
     Active Substance: MEPERIDINE HYDROCHLORIDE
     Dosage: UNK
  9. PERCOCET [Suspect]
     Active Substance: ACETAMINOPHEN\OXYCODONE HYDROCHLORIDE
     Dosage: UNK
  10. DULCOLAX [Suspect]
     Active Substance: BISACODYL OR DOCUSATE SODIUM
     Dosage: UNK
  11. ISOPROPYL ALCOHOL. [Suspect]
     Active Substance: ISOPROPYL ALCOHOL
     Dosage: UNK
  12. VERSED [Suspect]
     Active Substance: MIDAZOLAM HYDROCHLORIDE
     Dosage: UNK
  13. SODIUM CARBOXYMETHYLCELLULOSE [Suspect]
     Active Substance: CARBOXYMETHYLCELLULOSE SODIUM
     Dosage: 1 %, UNK
  14. CYCLOGYL [Suspect]
     Active Substance: CYCLOPENTOLATE HYDROCHLORIDE
     Dosage: UNK
  15. CHLOROFORM [Suspect]
     Active Substance: CHLOROFORM
     Dosage: UNK
  16. ETHER. [Suspect]
     Active Substance: ETHER
     Dosage: UNK
  17. XYLENE [Suspect]
     Active Substance: XYLENE
     Dosage: UNK
  18. LASIX [Suspect]
     Active Substance: FUROSEMIDE
     Dosage: UNK
  19. ATENOLOL. [Suspect]
     Active Substance: ATENOLOL
     Dosage: UNK
  20. FENTANYL. [Suspect]
     Active Substance: FENTANYL
     Dosage: UNK
  21. CODEINE [Suspect]
     Active Substance: CODEINE
     Dosage: UNK
  22. TOPROL XL [Suspect]
     Active Substance: METOPROLOL SUCCINATE
     Dosage: UNK
  23. ASPIRIN. [Suspect]
     Active Substance: ASPIRIN
     Dosage: UNK
  24. ULTRAM [Suspect]
     Active Substance: TRAMADOL HYDROCHLORIDE
     Dosage: UNK
  25. VICODIN [Suspect]
     Active Substance: ACETAMINOPHEN\HYDROCODONE BITARTRATE
     Dosage: UNK
  26. PHENYLEPHRINE [Suspect]
     Active Substance: PHENYLEPHRINE\PHENYLEPHRINE HYDROCHLORIDE
     Dosage: 2.5 %, UNK
  27. AMLODIPINE BESILATE [Suspect]
     Active Substance: AMLODIPINE BESYLATE
     Dosage: UNK
  28. DILTIAZEM HCL [Suspect]
     Active Substance: DILTIAZEM HYDROCHLORIDE
     Dosage: UNK
  29. BUMEX [Suspect]
     Active Substance: BUMETANIDE
     Dosage: UNK

REACTIONS (1)
  - Drug hypersensitivity [Unknown]
